FAERS Safety Report 6160154-6 (Version None)
Quarter: 2009Q2

REPORT INFORMATION
  Report Type: 
  Country: None (occurrence: None)
  Receive Date: 20090420
  Receipt Date: 20090413
  Transmission Date: 20091009
  Serious: Yes (Disabling)
  Sender: FDA-Public Use
  Company Number: A0767972A

PATIENT
  Age: 82 Year
  Sex: Male

DRUGS (9)
  1. ADVAIR HFA [Suspect]
     Indication: CHRONIC OBSTRUCTIVE PULMONARY DISEASE
     Route: 055
     Dates: start: 20050101
  2. JANUVIA [Concomitant]
  3. VALSARTAN [Concomitant]
  4. AMLODIPINE [Concomitant]
  5. HYDRALAZINE HCL [Concomitant]
  6. CRESTOR [Concomitant]
  7. PANTOPRAZOLE SODIUM [Concomitant]
  8. PROVENTIL [Concomitant]
  9. BRIMONIDINE TARTRATE [Concomitant]

REACTIONS (6)
  - AGITATION [None]
  - ANXIETY [None]
  - DYSPNOEA [None]
  - EXPIRED DRUG ADMINISTERED [None]
  - PANIC ATTACK [None]
  - RESTLESSNESS [None]
